FAERS Safety Report 17285694 (Version 1)
Quarter: 2020Q1

REPORT INFORMATION
  Report Type: Spontaneous
  Country: US (occurrence: US)
  Receive Date: 20200118
  Receipt Date: 20200118
  Transmission Date: 20200409
  Serious: No
  Sender: FDA-Public Use
  Company Number: US-UNITED THERAPEUTICS-UNT-2019-011054

PATIENT
  Sex: Female
  Weight: 81.63 kg

DRUGS (3)
  1. ADCIRCA [Concomitant]
     Active Substance: TADALAFIL
     Indication: PULMONARY ARTERIAL HYPERTENSION
     Route: 065
  2. REMODULIN [Suspect]
     Active Substance: TREPROSTINIL
     Indication: PULMONARY ARTERIAL HYPERTENSION
     Dosage: 0.010 ?G/KG, CONTINUING
     Route: 058
     Dates: start: 20190218
  3. LETAIRIS [Concomitant]
     Active Substance: AMBRISENTAN
     Indication: PRODUCT USED FOR UNKNOWN INDICATION
     Route: 065

REACTIONS (12)
  - Paraesthesia [Unknown]
  - Nasal congestion [Unknown]
  - Muscle strain [Unknown]
  - Discomfort [Unknown]
  - Diarrhoea [Unknown]
  - Hypoaesthesia [Unknown]
  - Urticaria [Unknown]
  - Infusion site swelling [Unknown]
  - Diverticulum [Unknown]
  - Infusion site pain [Unknown]
  - Weight decreased [Unknown]
  - Tendonitis [Unknown]

NARRATIVE: CASE EVENT DATE: 2019
